FAERS Safety Report 4972593-7 (Version None)
Quarter: 2006Q1

REPORT INFORMATION
  Report Type: 
  Country: None (occurrence: None)
  Receive Date: 20060216
  Receipt Date: 20060119
  Transmission Date: 20060701
  Serious: No
  Sender: FDA-Public Use
  Company Number: TPA2005A01667

PATIENT
  Age: 62 Year
  Sex: Female
  Weight: 49.8957 kg

DRUGS (5)
  1. ROZEREM [Suspect]
     Indication: INSOMNIA
     Dosage: 8 MG, HS AS REQUIRED, PER ORAL
     Route: 048
     Dates: start: 20051107
  2. SYNTHROID [Concomitant]
  3. CELEXA (CITALOPRAM HYDROBROMIDE) (20 MILLIGRAM) [Concomitant]
  4. ACTONEL (RISEDRONATE SODIUM) (35 MILLIGRAM) [Concomitant]
  5. FLONASE [Concomitant]

REACTIONS (4)
  - ASTHENOPIA [None]
  - DRUG INEFFECTIVE [None]
  - FATIGUE [None]
  - SOMNOLENCE [None]
